FAERS Safety Report 20968452 (Version 5)
Quarter: 2022Q4

REPORT INFORMATION
  Report Type: Report from Study
  Country: US (occurrence: US)
  Receive Date: 20220616
  Receipt Date: 20221006
  Transmission Date: 20230113
  Serious: Yes (Other)
  Sender: FDA-Public Use
  Company Number: US-NOVARTISTESTPH-NVSC2022US122575

PATIENT
  Sex: Female

DRUGS (1)
  1. ENTRESTO [Suspect]
     Active Substance: SACUBITRIL\VALSARTAN
     Indication: Product used for unknown indication
     Dosage: 1 DOSAGE FORM (24/26 MG), BID
     Route: 048
     Dates: start: 202103

REACTIONS (10)
  - Cataract [Unknown]
  - Pain in extremity [Unknown]
  - Back pain [Unknown]
  - Chills [Unknown]
  - Gallbladder disorder [Unknown]
  - Abdominal discomfort [Unknown]
  - Illness [Unknown]
  - Arthritis [Unknown]
  - Reading disorder [Unknown]
  - Vomiting [Unknown]
